FAERS Safety Report 9222309 (Version 2)
Quarter: 2013Q2

REPORT INFORMATION
  Report Type: Spontaneous
  Country: US (occurrence: US)
  Receive Date: 20130410
  Receipt Date: 20130522
  Transmission Date: 20140414
  Serious: Yes (Other)
  Sender: FDA-Public Use
  Company Number: US-PFIZER INC-2013112212

PATIENT
  Age: 63 Year
  Sex: Female
  Weight: 72 kg

DRUGS (12)
  1. LYRICA [Suspect]
     Indication: PAIN IN EXTREMITY
     Dosage: 75 MG, 2X/DAY
     Route: 048
     Dates: start: 20130325, end: 2013
  2. LYRICA [Suspect]
     Indication: NEURITIS
     Dosage: 75 MG, 2X/DAY
     Route: 048
     Dates: start: 2013, end: 20130408
  3. PRILOSEC [Concomitant]
     Dosage: 40 MG, 2X/DAY
  4. FIORICET [Concomitant]
     Dosage: 50-325-40, 8-4-6 H
  5. VITAMIN D [Concomitant]
     Dosage: 1000 UG, 1X/DAY
  6. MAGNESIUM [Concomitant]
     Dosage: 200 MG, 1X/DAY
  7. ASA [Concomitant]
     Dosage: 81 MG, 1X/DAY
  8. PANTOPRAZOLE [Concomitant]
     Dosage: 40 MG, 1X/DAY
  9. CHITOSAN [Concomitant]
     Dosage: 500 MG, UNK
  10. LISINOPRIL [Concomitant]
     Dosage: 5 MG, 1X/DAY
  11. CALCIUM [Concomitant]
     Dosage: 1500 MG, 1X/DAY
  12. FISH OIL [Concomitant]
     Dosage: 1000 MG, 1X/DAY

REACTIONS (11)
  - Chromaturia [Unknown]
  - Pain in extremity [Unknown]
  - Balance disorder [Unknown]
  - Asthenia [Unknown]
  - Vision blurred [Unknown]
  - Pain [Unknown]
  - Chills [Unknown]
  - Dizziness [Unknown]
  - Headache [Unknown]
  - Hypersomnia [Unknown]
  - Feeling abnormal [Unknown]
